FAERS Safety Report 23636178 (Version 1)
Quarter: 2024Q1

REPORT INFORMATION
  Report Type: Spontaneous
  Country: US (occurrence: US)
  Receive Date: 20240315
  Receipt Date: 20240315
  Transmission Date: 20240410
  Serious: No
  Sender: FDA-Public Use
  Company Number: US-ABBVIE-5680100

PATIENT
  Age: 23 Year
  Sex: Female

DRUGS (2)
  1. LILETTA [Suspect]
     Active Substance: LEVONORGESTREL
     Indication: Product used for unknown indication
     Dosage: TIME INTERVAL: AS NECESSARY: FORM STRENGTH 52 MILLIGRAMS
     Route: 015
     Dates: start: 20240110, end: 20240311
  2. LILETTA [Suspect]
     Active Substance: LEVONORGESTREL
     Dosage: TIME INTERVAL: AS NECESSARY: FORM STRENGTH 52 MILLIGRAMS
     Route: 015
     Dates: start: 20240311

REACTIONS (1)
  - Device dislocation [Unknown]

NARRATIVE: CASE EVENT DATE: 20240311
